FAERS Safety Report 8143839-1 (Version None)
Quarter: 2012Q1

REPORT INFORMATION
  Report Type: 
  Country: None (occurrence: None)
  Receive Date: 20120217
  Receipt Date: 20120215
  Transmission Date: 20120608
  Serious: Yes (Hospitalization)
  Sender: FDA-Public Use
  Company Number: GB-ROXANE LABORATORIES, INC.-2012-RO-00661RO

PATIENT
  Age: 62 Year
  Sex: Female

DRUGS (2)
  1. PREDNISOLONE [Suspect]
     Indication: PALINDROMIC RHEUMATISM
     Dosage: 20 MG
  2. DEXAMETHASONE [Suspect]
     Dosage: 10 MG
     Route: 042

REACTIONS (2)
  - IMPAIRED HEALING [None]
  - INFECTIOUS PERITONITIS [None]
